FAERS Safety Report 9840699 (Version 1)
Quarter: 2014Q1

REPORT INFORMATION
  Report Type: Spontaneous
  Country: US (occurrence: None)
  Receive Date: 20140121
  Receipt Date: 20140121
  Transmission Date: 20141002
  Serious: Yes (Hospitalization)
  Sender: FDA-Public Use
  Company Number: None

PATIENT
  Age: 65 Year
  Sex: Male
  Weight: 74 kg

DRUGS (1)
  1. SUNITINIB MALATE [Suspect]

REACTIONS (6)
  - Vomiting [None]
  - Chills [None]
  - Pyrexia [None]
  - Diarrhoea [None]
  - Blood pressure systolic increased [None]
  - Bacteraemia [None]
